FAERS Safety Report 6077343-1 (Version None)
Quarter: 2009Q1

REPORT INFORMATION
  Report Type: 
  Country: None (occurrence: None)
  Receive Date: 20090213
  Receipt Date: 20090209
  Transmission Date: 20090719
  Serious: Yes (Other)
  Sender: FDA-Public Use
  Company Number: B0558222A

PATIENT
  Age: 15 Year
  Sex: Female

DRUGS (2)
  1. RELENZA [Suspect]
     Indication: DRUG USE FOR UNKNOWN INDICATION
     Route: 055
     Dates: start: 20090204, end: 20090204
  2. CALONAL [Concomitant]
     Route: 065
     Dates: start: 20090204

REACTIONS (1)
  - ASTHMA [None]
